FAERS Safety Report 8059416-7 (Version None)
Quarter: 2012Q1

REPORT INFORMATION
  Report Type: 
  Country: None (occurrence: None)
  Receive Date: 20120120
  Receipt Date: 20120116
  Transmission Date: 20120608
  Serious: Yes (Death)
  Sender: FDA-Public Use
  Company Number: CN-SANOFI-AVENTIS-2012SA002173

PATIENT
  Age: 76 Year
  Sex: Male
  Weight: 52 kg

DRUGS (3)
  1. DOCETAXEL [Suspect]
     Indication: PROSTATE CANCER
     Route: 042
     Dates: start: 20111205, end: 20111205
  2. DOCETAXEL [Suspect]
     Route: 042
     Dates: start: 20111229, end: 20111229
  3. PREDNISONE [Concomitant]
     Route: 065
     Dates: start: 20111205, end: 20120108

REACTIONS (1)
  - DEATH [None]
